FAERS Safety Report 8789035 (Version 4)
Quarter: 2013Q1

REPORT INFORMATION
  Report Type: Spontaneous
  Country: US (occurrence: US)
  Receive Date: 20120916
  Receipt Date: 20130329
  Transmission Date: 20140127
  Serious: No
  Sender: FDA-Public Use
  Company Number: US-009507513-1209USA003235

PATIENT
  Age: 35 Year
  Sex: Female
  Weight: 90.7 kg

DRUGS (1)
  1. IMPLANON [Suspect]
     Indication: CONTRACEPTION
     Dosage: UNK
     Route: 059
     Dates: start: 20100722, end: 20120406

REACTIONS (8)
  - Scar [Unknown]
  - Device breakage [Unknown]
  - Device dislocation [Unknown]
  - Device difficult to use [Unknown]
  - Metrorrhagia [Unknown]
  - Weight increased [Unknown]
  - Acne [Unknown]
  - Menstruation irregular [Unknown]
